FAERS Safety Report 8789036 (Version 2)
Quarter: 2013Q4

REPORT INFORMATION
  Report Type: Spontaneous
  Country: US (occurrence: US)
  Receive Date: 20120916
  Receipt Date: 20131031
  Transmission Date: 20140711
  Serious: Yes (Other)
  Sender: FDA-Public Use
  Company Number: US-009507513-1209USA003041

PATIENT
  Age: 37 Year
  Sex: Female

DRUGS (3)
  1. ISENTRESS [Suspect]
     Dosage: 800 MG, UNK
     Route: 048
  2. EPIVIR [Suspect]
     Dosage: 300 MG, QD
     Route: 048
  3. VIREAD [Suspect]
     Dosage: 300 MG, QD
     Route: 048

REACTIONS (2)
  - Abortion induced [Unknown]
  - Maternal exposure during pregnancy [Unknown]
